FAERS Safety Report 6895037-7 (Version None)
Quarter: 2010Q3

REPORT INFORMATION
  Report Type: 
  Country: None (occurrence: None)
  Receive Date: 20100802
  Receipt Date: 20100719
  Transmission Date: 20110219
  Serious: Yes (Other)
  Sender: FDA-Public Use
  Company Number: US-ELI_LILLY_AND_COMPANY-US201005006168

PATIENT
  Age: 6 Year
  Sex: Male
  Weight: 26.757 kg

DRUGS (2)
  1. STRATTERA [Suspect]
     Indication: ATTENTION DEFICIT/HYPERACTIVITY DISORDER
     Dosage: 10 MG, UNKNOWN
     Route: 065
     Dates: start: 20100428, end: 20100503
  2. ADDERALL XR 10 [Concomitant]

REACTIONS (2)
  - SELF-INJURIOUS IDEATION [None]
  - SUICIDAL IDEATION [None]
